FAERS Safety Report 6262043-5 (Version None)
Quarter: 2009Q3

REPORT INFORMATION
  Report Type: 
  Country: None (occurrence: None)
  Receive Date: 20090709
  Receipt Date: 20090702
  Transmission Date: 20100115
  Serious: Yes (Other)
  Sender: FDA-Public Use
  Company Number: US-ASTRAZENECA-2009UW18491

PATIENT
  Sex: Female

DRUGS (7)
  1. SEROQUEL [Suspect]
     Route: 048
     Dates: end: 20081216
  2. VARENICLINE [Suspect]
     Route: 065
  3. SIMVASTATIN [Concomitant]
     Indication: BLOOD CHOLESTEROL
     Route: 065
  4. PLAVIX [Concomitant]
     Route: 065
  5. LISINOPRIL [Concomitant]
     Route: 048
  6. ASPIRIN [Concomitant]
     Route: 065
  7. ANTIHYPERTENSIVES [Concomitant]
     Route: 065

REACTIONS (7)
  - BLOOD PRESSURE DECREASED [None]
  - CONTUSION [None]
  - DEAFNESS [None]
  - MUSCLE SPASMS [None]
  - MYOCARDIAL INFARCTION [None]
  - PAIN [None]
  - SUICIDAL IDEATION [None]
